FAERS Safety Report 18195547 (Version 1)
Quarter: 2020Q3

REPORT INFORMATION
  Report Type: Spontaneous
  Country: FR (occurrence: FR)
  Receive Date: 20200825
  Receipt Date: 20200825
  Transmission Date: 20201103
  Serious: Yes (Hospitalization)
  Sender: FDA-Public Use
  Company Number: FR-PFIZER INC-2020325318

PATIENT
  Age: 65 Year
  Sex: Male
  Weight: 54 kg

DRUGS (9)
  1. SOLU?MEDROL [Suspect]
     Active Substance: METHYLPREDNISOLONE SODIUM SUCCINATE
     Indication: ADRENOCORTICAL STEROID THERAPY
     Dosage: 60 MG, 1X/DAY
     Route: 042
     Dates: start: 20180328, end: 20180328
  2. MEDROL [Concomitant]
     Active Substance: METHYLPREDNISOLONE
  3. ELIQUIS [Concomitant]
     Active Substance: APIXABAN
  4. CORDARONE [Concomitant]
     Active Substance: AMIODARONE HYDROCHLORIDE
  5. HYCAMTIN [Suspect]
     Active Substance: TOPOTECAN HYDROCHLORIDE
     Indication: BRONCHIAL CARCINOMA
     Dosage: 6.5 MG, 1X/DAY
     Route: 041
     Dates: start: 20180328, end: 20180328
  6. PERINDOPRIL [Concomitant]
     Active Substance: PERINDOPRIL
  7. ABASAGLAR [Concomitant]
     Active Substance: INSULIN GLARGINE
  8. HUMALOG [Concomitant]
     Active Substance: INSULIN LISPRO
  9. SERESTA [Concomitant]
     Active Substance: OXAZEPAM

REACTIONS (2)
  - Hyperthermia [Recovered/Resolved]
  - Pancytopenia [Recovered/Resolved]

NARRATIVE: CASE EVENT DATE: 20180403
